FAERS Safety Report 8449437 (Version 7)
Quarter: 2015Q2

REPORT INFORMATION
  Report Type: Spontaneous
  Country: US (occurrence: US)
  Receive Date: 20120308
  Receipt Date: 20150630
  Transmission Date: 20150821
  Serious: Yes (Other)
  Sender: FDA-Public Use
  Company Number: US-PFIZER INC-2012055587

PATIENT
  Age: 81 Year
  Sex: Female

DRUGS (6)
  1. XALATAN [Suspect]
     Active Substance: LATANOPROST
     Indication: EXFOLIATION GLAUCOMA
     Dosage: ONE DROP IN BOTH EYES EVERY NIGHT AT BEDTIME
     Route: 047
     Dates: start: 2005
  2. HYDROCHLOROTHIAZIDE. [Concomitant]
     Active Substance: HYDROCHLOROTHIAZIDE
     Dosage: UNK
     Dates: start: 1995
  3. SYNTHROID [Concomitant]
     Active Substance: LEVOTHYROXINE SODIUM
     Dosage: UNK
     Dates: start: 1962
  4. DIOVAN [Concomitant]
     Active Substance: VALSARTAN
     Dosage: UNK
     Dates: start: 1995
  5. COMBIGAN [Concomitant]
     Active Substance: BRIMONIDINE TARTRATE\TIMOLOL MALEATE
     Dosage: UNK
     Dates: start: 201311
  6. METOPROLOL [Concomitant]
     Active Substance: METOPROLOL
     Dosage: UNK
     Dates: start: 1995

REACTIONS (2)
  - Off label use [Not Recovered/Not Resolved]
  - Oral disorder [Recovered/Resolved]

NARRATIVE: CASE EVENT DATE: 2005
